FAERS Safety Report 13878013 (Version 1)
Quarter: 2017Q3

REPORT INFORMATION
  Report Type: Spontaneous
  Country: JP (occurrence: JP)
  Receive Date: 20170817
  Receipt Date: 20170817
  Transmission Date: 20171127
  Serious: Yes (Other)
  Sender: FDA-Public Use
  Company Number: JP-BAYER-2017-155600

PATIENT
  Sex: Female

DRUGS (2)
  1. YAZ [Suspect]
     Active Substance: DROSPIRENONE\ETHINYL ESTRADIOL
     Indication: DYSMENORRHOEA
     Dosage: UNK
     Route: 048
     Dates: start: 20170807
  2. YAZ [Suspect]
     Active Substance: DROSPIRENONE\ETHINYL ESTRADIOL
     Indication: DYSMENORRHOEA
     Dosage: UNK
     Route: 048
     Dates: end: 201708

REACTIONS (9)
  - Panic reaction [None]
  - Intentional product use issue [None]
  - Oropharyngeal pain [None]
  - Seizure [None]
  - Dehydration [None]
  - Headache [None]
  - Nausea [None]
  - Hyperventilation [None]
  - Nasopharyngitis [None]

NARRATIVE: CASE EVENT DATE: 20170804
